FAERS Safety Report 5574997-0 (Version None)
Quarter: 2007Q4

REPORT INFORMATION
  Report Type: 
  Country: None (occurrence: None)
  Receive Date: 20071227
  Receipt Date: 20071219
  Transmission Date: 20080405
  Serious: Yes (Hospitalization)
  Sender: FDA-Public Use
  Company Number: B0500920A

PATIENT
  Age: 33 Year
  Sex: Female

DRUGS (1)
  1. VALTREX [Suspect]
     Indication: GENITAL HERPES
     Route: 048
     Dates: end: 20071127

REACTIONS (3)
  - BONE MARROW FAILURE [None]
  - HYPERSENSITIVITY [None]
  - URTICARIA [None]
